FAERS Safety Report 10155025 (Version 1)
Quarter: 2014Q2

REPORT INFORMATION
  Report Type: Spontaneous
  Country: US (occurrence: US)
  Receive Date: 20140506
  Receipt Date: 20140506
  Transmission Date: 20141212
  Serious: No
  Sender: FDA-Public Use
  Company Number: US-ASTRAZENECA-2013SE56019

PATIENT
  Age: 36 Year
  Sex: Male
  Weight: 72.6 kg

DRUGS (2)
  1. PRILOSEC [Suspect]
     Indication: GASTROOESOPHAGEAL REFLUX DISEASE
     Route: 048
     Dates: start: 2011, end: 20130710
  2. TUMS OTC [Concomitant]
     Dosage: PRN

REACTIONS (4)
  - Pain in extremity [Unknown]
  - Muscular weakness [Unknown]
  - Arthralgia [Unknown]
  - Incorrect drug administration duration [Unknown]
